FAERS Safety Report 24381560 (Version 1)
Quarter: 2024Q4

REPORT INFORMATION
  Report Type: Spontaneous
  Country: CN (occurrence: CN)
  Receive Date: 20241001
  Receipt Date: 20241001
  Transmission Date: 20250115
  Serious: Yes (Hospitalization)
  Sender: NOVO NORDISK
  Company Number: None

PATIENT
  Age: 52 Year
  Sex: Female
  Weight: 62 kg

DRUGS (1)
  1. OZEMPIC [Suspect]
     Active Substance: SEMAGLUTIDE
     Indication: Type 2 diabetes mellitus
     Dosage: 0.5 MG, QW
     Route: 058
     Dates: start: 20240812, end: 20240912

REACTIONS (9)
  - Abdominal discomfort [Recovering/Resolving]
  - Chest discomfort [Unknown]
  - Dizziness [Unknown]
  - Gastrooesophageal reflux disease [Unknown]
  - Diarrhoea [Unknown]
  - Eructation [Unknown]
  - Hepatic cyst [Unknown]
  - Duodenal polyp [Unknown]
  - Gallbladder polyp [Unknown]

NARRATIVE: CASE EVENT DATE: 20240912
